FAERS Safety Report 9783689 (Version 1)
Quarter: 2013Q4

REPORT INFORMATION
  Report Type: Spontaneous
  Country: US (occurrence: None)
  Receive Date: 20131223
  Receipt Date: 20131223
  Transmission Date: 20140711
  Serious: Yes (Other)
  Sender: FDA-Public Use
  Company Number: EUS-2012-00490

PATIENT
  Age: 15 Year
  Sex: Male

DRUGS (1)
  1. ASPARAGINASE (UNSPECIFIED) (ASPARAGINASE) [Suspect]
     Indication: NON-HODGKIN^S LYMPHOMA

REACTIONS (3)
  - Pancreatitis [None]
  - Pancreatic necrosis [None]
  - Pancreas infection [None]
